FAERS Safety Report 18179908 (Version 3)
Quarter: 2020Q4

REPORT INFORMATION
  Report Type: Spontaneous
  Country: US (occurrence: US)
  Receive Date: 20200821
  Receipt Date: 20201102
  Transmission Date: 20210113
  Serious: Yes (Hospitalization, Other)
  Sender: FDA-Public Use
  Company Number: US-SA-2020SA222629

PATIENT

DRUGS (2)
  1. VANCOMYCIN [Suspect]
     Active Substance: VANCOMYCIN
     Indication: PERIPHERAL SWELLING
  2. DUPIXENT [Suspect]
     Active Substance: DUPILUMAB
     Indication: DERMATITIS ATOPIC
     Dosage: 300 MG, QOW
     Route: 058
     Dates: start: 2017

REACTIONS (11)
  - Peripheral swelling [Unknown]
  - Pain in extremity [Unknown]
  - Nephropathy toxic [Unknown]
  - Product dose omission issue [Unknown]
  - Hospitalisation [Unknown]
  - Neck pain [Unknown]
  - Skin weeping [Unknown]
  - Spinal operation [Unknown]
  - Localised infection [Unknown]
  - Drug-induced liver injury [Unknown]
  - Skin fissures [Unknown]
